FAERS Safety Report 8974742 (Version 1)
Quarter: 2012Q4

REPORT INFORMATION
  Report Type: 
  Country: JP (occurrence: JP)
  Receive Date: 20121219
  Receipt Date: 20121219
  Transmission Date: 20130627
  Serious: Yes (Hospitalization)
  Sender: FDA-Public Use
  Company Number: JP-MYLANLABS-2012S1025326

PATIENT
  Age: 47 Year
  Sex: Female

DRUGS (8)
  1. IMATINIB [Suspect]
     Indication: SUICIDE ATTEMPT
     Dosage: 2000mg
     Route: 065
  2. IMATINIB [Suspect]
     Indication: CHRONIC MYELOID LEUKAEMIA
     Dosage: 2000mg
     Route: 065
  3. IMATINIB [Suspect]
     Indication: SUICIDE ATTEMPT
     Dosage: 400mg/day then reduced to 200mg/day
     Route: 065
  4. IMATINIB [Suspect]
     Indication: CHRONIC MYELOID LEUKAEMIA
     Dosage: 400mg/day then reduced to 200mg/day
     Route: 065
  5. IMATINIB [Suspect]
     Indication: SUICIDE ATTEMPT
     Dosage: 200mg/day
     Route: 065
  6. IMATINIB [Suspect]
     Indication: CHRONIC MYELOID LEUKAEMIA
     Dosage: 200mg/day
     Route: 065
  7. BROTIZOLAM [Suspect]
     Indication: SUICIDE ATTEMPT
     Dosage: 12.5mg
     Route: 065
  8. TRIAZOLAM [Suspect]
     Indication: SUICIDE ATTEMPT
     Dosage: 3.5mg
     Route: 065

REACTIONS (5)
  - Intentional overdose [Recovering/Resolving]
  - Coma [Recovering/Resolving]
  - Muscle spasms [Unknown]
  - Gastrointestinal hypomotility [Unknown]
  - Suicide attempt [Recovering/Resolving]
